FAERS Safety Report 20938467 (Version 1)
Quarter: 2022Q2

REPORT INFORMATION
  Report Type: Spontaneous
  Country: FR (occurrence: FR)
  Receive Date: 20220609
  Receipt Date: 20220609
  Transmission Date: 20220720
  Serious: Yes (Hospitalization)
  Sender: FDA-Public Use
  Company Number: None

PATIENT
  Age: 62 Year
  Sex: Male

DRUGS (5)
  1. LEVOFLOXACIN [Suspect]
     Active Substance: LEVOFLOXACIN
     Indication: Arthritis bacterial
     Dosage: 500 MG, QOD
     Route: 048
     Dates: start: 20220503, end: 20220510
  2. RIFAMPIN [Suspect]
     Active Substance: RIFAMPIN
     Indication: Arthritis bacterial
     Dosage: 900 MG, QOD
     Route: 042
     Dates: start: 20220415, end: 20220509
  3. CEFAZOLIN [Suspect]
     Active Substance: CEFAZOLIN
     Indication: Arthritis bacterial
     Dosage: 1200 MG
     Route: 042
     Dates: start: 20220420, end: 20220502
  4. PIPERACILLIN SODIUM\TAZOBACTAM SODIUM [Suspect]
     Active Substance: PIPERACILLIN SODIUM\TAZOBACTAM SODIUM
     Indication: Arthritis bacterial
     Dosage: 4 G, Q3D
     Route: 042
     Dates: start: 20220414, end: 20220420
  5. CUBICIN [Suspect]
     Active Substance: DAPTOMYCIN
     Indication: Arthritis bacterial
     Dosage: 1000 MG
     Route: 042
     Dates: start: 20220414, end: 20220420

REACTIONS (1)
  - Rash maculo-papular [Recovered/Resolved]

NARRATIVE: CASE EVENT DATE: 20220101
